FAERS Safety Report 10734190 (Version 3)
Quarter: 2015Q1

REPORT INFORMATION
  Report Type: Spontaneous
  Country: US (occurrence: US)
  Receive Date: 20150123
  Receipt Date: 20150327
  Transmission Date: 20150721
  Serious: Yes (Life-Threatening, Other)
  Sender: FDA-Public Use
  Company Number: US-ASTELLAS-2015US001612

PATIENT
  Age: 82 Year
  Sex: Female

DRUGS (1)
  1. MYRBETRIQ [Suspect]
     Active Substance: MIRABEGRON
     Indication: POLLAKIURIA
     Route: 048
     Dates: start: 201411

REACTIONS (11)
  - Balance disorder [Unknown]
  - Feeling abnormal [Unknown]
  - Confusional state [Recovered/Resolved]
  - Pneumonia [Recovered/Resolved]
  - Septic shock [Unknown]
  - Apparent death [Recovered/Resolved]
  - Dysuria [Unknown]
  - Tremor [Unknown]
  - Asthenia [Unknown]
  - Nervous system disorder [Unknown]
  - Pyrexia [Recovered/Resolved]

NARRATIVE: CASE EVENT DATE: 20141213
